FAERS Safety Report 5235136-9 (Version None)
Quarter: 2007Q1

REPORT INFORMATION
  Report Type: 
  Country: None (occurrence: None)
  Receive Date: 20070207
  Receipt Date: 20070122
  Transmission Date: 20070707
  Serious: Yes (Death)
  Sender: FDA-Public Use
  Company Number: 070122-0000090

PATIENT
  Age: 3 Day
  Sex: Male
  Weight: 2.9 kg

DRUGS (1)
  1. INDOMETHACIN SODIUM [Suspect]
     Indication: PATENT DUCTUS ARTERIOSUS
     Dosage: UNKNOWN; 3 DOSES; IV
     Route: 042

REACTIONS (2)
  - HAEMORRHAGE INTRACRANIAL [None]
  - SUDDEN INFANT DEATH SYNDROME [None]
